FAERS Safety Report 8472446-6 (Version None)
Quarter: 2012Q2

REPORT INFORMATION
  Report Type: 
  Country: None (occurrence: None)
  Receive Date: 20120627
  Receipt Date: 20111115
  Transmission Date: 20120825
  Serious: No
  Sender: FDA-Public Use
  Company Number: US-AMGEN-USASP2011060414

PATIENT
  Sex: Male
  Weight: 67.483 kg

DRUGS (7)
  1. PROCRIT [Suspect]
     Indication: RENAL FAILURE CHRONIC
     Dosage: 40000 IU, Q2WK
     Route: 058
     Dates: start: 20110713, end: 20111111
  2. ASPIRIN [Concomitant]
     Indication: ANTICOAGULANT THERAPY
     Dosage: 81 MG, QD
  3. TOPROL-XL [Concomitant]
     Indication: BLOOD PRESSURE ABNORMAL
     Dosage: 50 MG, QD
  4. LEVOTHYROXINE [Concomitant]
     Indication: THYROID DISORDER
  5. TERAZOSIN HCL [Concomitant]
     Dosage: 1 MG, QD
  6. IRON [Concomitant]
  7. NORVASC [Concomitant]
     Indication: BLOOD PRESSURE ABNORMAL
     Dosage: 5 MG, BID

REACTIONS (5)
  - DIARRHOEA [None]
  - VOMITING [None]
  - ERYTHEMA [None]
  - INFLUENZA LIKE ILLNESS [None]
  - PRURITUS GENERALISED [None]
